FAERS Safety Report 15776868 (Version 1)
Quarter: 2018Q4

REPORT INFORMATION
  Report Type: Spontaneous
  Country: US (occurrence: US)
  Receive Date: 20181231
  Receipt Date: 20181231
  Transmission Date: 20190205
  Serious: No
  Sender: FDA-Public Use
  Company Number: US-PFIZER INC-2018531856

PATIENT
  Age: 70 Year
  Sex: Female
  Weight: 84.37 kg

DRUGS (2)
  1. PREMARIN [Suspect]
     Active Substance: ESTROGENS, CONJUGATED
     Dosage: UNK
  2. PREMARIN [Suspect]
     Active Substance: ESTROGENS, CONJUGATED
     Indication: PRURITUS
     Dosage: 0.5 G, DAILY
     Route: 067
     Dates: start: 2018, end: 201811

REACTIONS (1)
  - Drug effect incomplete [Unknown]
